FAERS Safety Report 5573474-0 (Version None)
Quarter: 2007Q4

REPORT INFORMATION
  Report Type: 
  Country: None (occurrence: None)
  Receive Date: 20071226
  Receipt Date: 20071211
  Transmission Date: 20080405
  Serious: Yes (Hospitalization)
  Sender: FDA-Public Use
  Company Number: US-BAYER-US-2007-040437

PATIENT
  Age: 33 Year
  Sex: Female

DRUGS (6)
  1. BETASERON [Suspect]
     Indication: MULTIPLE SCLEROSIS
     Dosage: UNIT DOSE: 8 MIU
     Route: 058
     Dates: start: 20070118, end: 20070913
  2. TEGRETOL [Interacting]
  3. NEUROTON [Interacting]
  4. BACLOFEN [Interacting]
  5. ORAL CONTRACEPTIVE NOS [Interacting]
  6. SENTTURA [Interacting]

REACTIONS (4)
  - DEPRESSED LEVEL OF CONSCIOUSNESS [None]
  - DRUG INTERACTION [None]
  - FATIGUE [None]
  - INCOHERENT [None]
